FAERS Safety Report 9385642 (Version 2)
Quarter: 2013Q3

REPORT INFORMATION
  Report Type: Spontaneous
  Country: SK (occurrence: None)
  Receive Date: 20130701
  Receipt Date: 20130701
  Transmission Date: 20140515
  Serious: No
  Sender: FDA-Public Use
  Company Number: 1306SVK006453

PATIENT
  Sex: Female

DRUGS (1)
  1. CEDAX [Suspect]
     Route: 048

REACTIONS (2)
  - Hypersensitivity [None]
  - Urticaria [None]
